FAERS Safety Report 15835040 (Version 2)
Quarter: 2019Q2

REPORT INFORMATION
  Report Type: Spontaneous
  Country: US (occurrence: US)
  Receive Date: 20190116
  Receipt Date: 20190416
  Transmission Date: 20190711
  Serious: No
  Sender: FDA-Public Use
  Company Number: US-CHILTERN-US-2018-000145

PATIENT
  Age: 71 Year
  Sex: Male

DRUGS (7)
  1. RHOPRESSA [Suspect]
     Active Substance: NETARSUDIL MESYLATE
     Indication: GLAUCOMA
     Dosage: 1 GTT, QD
     Route: 047
     Dates: start: 20180626, end: 20180814
  2. MULTIVITAMIN                       /00097801/ [Concomitant]
     Active Substance: VITAMINS
     Dosage: DAILY
     Route: 048
  3. VYZULTA [Concomitant]
     Active Substance: LATANOPROSTENE BUNOD
     Indication: GLAUCOMA
     Dosage: NIGHTLY
     Route: 047
     Dates: start: 20180626
  4. COSOPT PF [Concomitant]
     Active Substance: DORZOLAMIDE HYDROCHLORIDE\TIMOLOL MALEATE
     Indication: GLAUCOMA
     Dosage: BID
     Route: 047
  5. ACETAZOLAMIDE. [Concomitant]
     Active Substance: ACETAZOLAMIDE
     Indication: GLAUCOMA
     Dosage: DAILY
     Route: 048
     Dates: start: 20180705
  6. ASPIRIN 81 [Concomitant]
     Active Substance: ASPIRIN
     Dosage: DAILY
     Route: 048
  7. BACITRACIN OPHTHALMIC [Concomitant]
     Dosage: NIGHTLY
     Route: 047

REACTIONS (1)
  - Uveitis [Recovered/Resolved]

NARRATIVE: CASE EVENT DATE: 20180814
